FAERS Safety Report 7550115-4 (Version None)
Quarter: 2011Q2

REPORT INFORMATION
  Report Type: 
  Country: None (occurrence: None)
  Receive Date: 20110525
  Receipt Date: 20110222
  Transmission Date: 20111010
  Serious: No
  Sender: FDA-Public Use
  Company Number: 324082

PATIENT
  Age: 71 Year
  Sex: Female

DRUGS (2)
  1. VICTOZA [Suspect]
     Indication: TYPE 2 DIABETES MELLITUS
     Dosage: 1.2 MG, QD, SUBCUTANEOUS
     Route: 058
  2. GLUCOPHAGE [Concomitant]

REACTIONS (7)
  - DYSPHAGIA [None]
  - DRUG DOSE OMISSION [None]
  - OROPHARYNGEAL PAIN [None]
  - BLOOD GLUCOSE INCREASED [None]
  - LETHARGY [None]
  - PRODUCT TASTE ABNORMAL [None]
  - MALAISE [None]
